FAERS Safety Report 4918205-X (Version None)
Quarter: 2006Q1

REPORT INFORMATION
  Report Type: 
  Country: None (occurrence: None)
  Receive Date: 20060215
  Receipt Date: 20060124
  Transmission Date: 20060701
  Serious: Yes (Hospitalization)
  Sender: FDA-Public Use
  Company Number: 6020455

PATIENT
  Age: 28 Year
  Sex: Female

DRUGS (2)
  1. ISOTRETINOIN [Suspect]
     Indication: ACNE
     Dosage: 40,000 MG (20 MG, 2 IN 1 D) ORAL
     Route: 048
     Dates: start: 20051017, end: 20051121
  2. PAROXETINE HCL [Suspect]
     Indication: ANXIETY

REACTIONS (5)
  - DRUG INTERACTION [None]
  - GALLBLADDER ENLARGEMENT [None]
  - HEPATIC FUNCTION ABNORMAL [None]
  - HEPATITIS [None]
  - HEPATOTOXICITY [None]
